FAERS Safety Report 5311315-7 (Version None)
Quarter: 2007Q2

REPORT INFORMATION
  Report Type: 
  Country: None (occurrence: None)
  Receive Date: 20070430
  Receipt Date: 20070418
  Transmission Date: 20071010
  Serious: Yes (Other)
  Sender: FDA-Public Use
  Company Number: PHBS2007JP06985

PATIENT
  Age: 69 Year
  Sex: Female

DRUGS (5)
  1. DIOVAN [Suspect]
     Indication: HYPERTENSION
     Dosage: 80 MG/DAY
     Route: 048
     Dates: end: 20070319
  2. AMARYL [Suspect]
     Indication: HYPERTENSION
     Dosage: 1 MG/DAY
     Route: 048
     Dates: end: 20070319
  3. NORVASC [Suspect]
     Indication: HYPERTENSION
     Dosage: 5 MG/DAY
     Route: 048
     Dates: end: 20070319
  4. GLYCYRON [Suspect]
     Indication: HYPERTENSION
     Dosage: 3 DF/DAY
     Route: 048
     Dates: end: 20070319
  5. FLUITRAN [Suspect]
     Dosage: 2 MG/DAY
     Route: 048
     Dates: end: 20070319

REACTIONS (1)
  - BLOOD CREATINE PHOSPHOKINASE INCREASED [None]
